FAERS Safety Report 5741748-6 (Version None)
Quarter: 2008Q2

REPORT INFORMATION
  Report Type: 
  Country: None (occurrence: None)
  Receive Date: 20080519
  Receipt Date: 20070503
  Transmission Date: 20081010
  Serious: No
  Sender: FDA-Public Use
  Company Number: US-BAYER-US-2007-016055

PATIENT
  Age: 75 Year
  Sex: Male

DRUGS (3)
  1. ULTRAVIST 300 [Suspect]
     Indication: COMPUTERISED TOMOGRAM ABDOMEN
     Dosage: UNIT DOSE: 100 ML
     Route: 042
     Dates: start: 20070503, end: 20070503
  2. LEVAQUIN [Concomitant]
  3. ZOCOR [Concomitant]

REACTIONS (2)
  - COUGH [None]
  - NAUSEA [None]
